FAERS Safety Report 9953193 (Version 1)
Quarter: 2014Q1

REPORT INFORMATION
  Report Type: Report from Study
  Country: US (occurrence: US)
  Receive Date: 20140304
  Receipt Date: 20140304
  Transmission Date: 20141002
  Serious: No
  Sender: FDA-Public Use
  Company Number: US-ABBVIE-13P-163-1077385-00

PATIENT
  Age: 37 Year
  Sex: Female

DRUGS (7)
  1. HUMIRA [Suspect]
     Indication: ANKYLOSING SPONDYLITIS
     Dates: start: 20130319
  2. CYMBALTA [Concomitant]
     Indication: PAIN
  3. CYMBALTA [Concomitant]
     Indication: DEPRESSION
  4. BISOPROLOL [Concomitant]
     Indication: HYPERTENSION
  5. BISOPROLOL [Concomitant]
     Indication: HEART RATE
  6. DITROPAN XL [Concomitant]
     Indication: BLADDER SPASM
  7. COLCHICINE [Concomitant]
     Indication: PRODUCT USED FOR UNKNOWN INDICATION
     Dosage: 0.6 MG IN AM, 1.2 MG AT BEDTIME

REACTIONS (3)
  - Fatigue [Not Recovered/Not Resolved]
  - Somnolence [Not Recovered/Not Resolved]
  - Ankylosing spondylitis [Not Recovered/Not Resolved]
